FAERS Safety Report 19238509 (Version 1)
Quarter: 2021Q2

REPORT INFORMATION
  Report Type: Spontaneous
  Country: CH (occurrence: CH)
  Receive Date: 20210510
  Receipt Date: 20210510
  Transmission Date: 20210717
  Serious: Yes (Other)
  Sender: FDA-Public Use
  Company Number: CH-TEVA-2021-CH-1903811

PATIENT
  Sex: Male

DRUGS (8)
  1. SERTRALIN?MEPHA [Interacting]
     Active Substance: SERTRALINE HYDROCHLORIDE
     Indication: DEPRESSION
     Dosage: 100 MILLIGRAM DAILY;
     Route: 048
     Dates: start: 20210215
  2. OLFEN (DICLOFENAC) [Suspect]
     Active Substance: DICLOFENAC
     Dosage: 150 MILLIGRAM DAILY;
     Route: 065
  3. INDERAL [Suspect]
     Active Substance: PROPRANOLOL HYDROCHLORIDE
     Dosage: 40 MILLIGRAM DAILY;
     Route: 065
  4. DULCOLAX NOS [Suspect]
     Active Substance: BISACODYL OR DOCUSATE SODIUM
  5. NASONEX [Suspect]
     Active Substance: MOMETASONE FUROATE
     Dosage: SPRAY
     Route: 065
  6. PANTOPRAZOLE [Suspect]
     Active Substance: PANTOPRAZOLE
     Route: 065
  7. BILAXTEN [Suspect]
     Active Substance: BILASTINE
     Route: 065
  8. REMERON [Suspect]
     Active Substance: MIRTAZAPINE

REACTIONS (16)
  - Dry mouth [Not Recovered/Not Resolved]
  - Chest pain [Not Recovered/Not Resolved]
  - Drug interaction [Not Recovered/Not Resolved]
  - Limb discomfort [Not Recovered/Not Resolved]
  - Hyperhidrosis [Not Recovered/Not Resolved]
  - Visual impairment [Not Recovered/Not Resolved]
  - Dizziness [Not Recovered/Not Resolved]
  - Pain in extremity [Not Recovered/Not Resolved]
  - Blood pressure increased [Not Recovered/Not Resolved]
  - Altered state of consciousness [Not Recovered/Not Resolved]
  - Suicidal ideation [Not Recovered/Not Resolved]
  - Constipation [Not Recovered/Not Resolved]
  - Lymphadenopathy [Not Recovered/Not Resolved]
  - Vomiting [Not Recovered/Not Resolved]
  - Loss of consciousness [Unknown]
  - Aggression [Not Recovered/Not Resolved]

NARRATIVE: CASE EVENT DATE: 2021
